FAERS Safety Report 23108299 (Version 1)
Quarter: 2023Q4

REPORT INFORMATION
  Report Type: Spontaneous
  Country: JP (occurrence: JP)
  Receive Date: 20231026
  Receipt Date: 20231026
  Transmission Date: 20240110
  Serious: Yes (Hospitalization)
  Sender: FDA-Public Use
  Company Number: JP-Eisai-EC-2023-151282

PATIENT
  Sex: Male

DRUGS (9)
  1. LENVIMA [Suspect]
     Active Substance: LENVATINIB
     Indication: Thyroid cancer
     Route: 048
     Dates: start: 20200601, end: 20200608
  2. LENVIMA [Suspect]
     Active Substance: LENVATINIB
     Route: 048
     Dates: start: 20200609, end: 20200618
  3. LENVIMA [Suspect]
     Active Substance: LENVATINIB
     Route: 048
     Dates: start: 20200625, end: 20200709
  4. LENVIMA [Suspect]
     Active Substance: LENVATINIB
     Route: 048
     Dates: start: 20200716, end: 20200910
  5. LENVIMA [Suspect]
     Active Substance: LENVATINIB
     Route: 048
     Dates: start: 20200917, end: 20201001
  6. LENVIMA [Suspect]
     Active Substance: LENVATINIB
     Route: 048
     Dates: start: 20201015, end: 20201019
  7. LENVIMA [Suspect]
     Active Substance: LENVATINIB
     Route: 048
     Dates: start: 20201105, end: 20201119
  8. LENVIMA [Suspect]
     Active Substance: LENVATINIB
     Dosage: (BETWEEN MONDAY AND FRIDAY ORAL ADMINISTRATION, INTERRUPTION ON SATURDAY AND SUNDAY)
     Route: 048
     Dates: start: 20201203, end: 20210214
  9. LENVIMA [Suspect]
     Active Substance: LENVATINIB
     Route: 048
     Dates: start: 20210215, end: 20210302

REACTIONS (1)
  - Feeding disorder [Unknown]

NARRATIVE: CASE EVENT DATE: 20210302
